FAERS Safety Report 8534849-0 (Version None)
Quarter: 2012Q3

REPORT INFORMATION
  Report Type: 
  Country: None (occurrence: None)
  Receive Date: 20120724
  Receipt Date: 20120710
  Transmission Date: 20120928
  Serious: No
  Sender: FDA-Public Use
  Company Number: US-ASTRAZENECA-2011SE52071

PATIENT
  Age: 60 Year
  Sex: Female

DRUGS (31)
  1. ZOLOFT [Concomitant]
  2. ESTRADIOL [Concomitant]
  3. ATENOL/CHLOR [Concomitant]
     Dosage: 50/25
  4. GABAPENTIN [Concomitant]
  5. ALBUTEROL [Concomitant]
     Dosage: PRN
  6. GAS-X [Concomitant]
     Dosage: DAILY
  7. PRILOSEC [Suspect]
     Route: 048
  8. ALLOPURINOL [Concomitant]
  9. TIZANIDINE HYDROCHLORIDE [Concomitant]
  10. TYLENOL [Concomitant]
     Dosage: PRN
  11. MAGNESIUM SULFATE [Concomitant]
  12. NEXIUM [Suspect]
     Indication: GASTROOESOPHAGEAL REFLUX DISEASE
     Route: 048
  13. LOMOTIL [Concomitant]
     Dosage: PRN 2.5/.025
  14. CALCIUM WITH MAGNESIUM AND ZINC [Concomitant]
  15. ATENOLOL [Suspect]
     Dosage: DAILY
     Route: 048
  16. ZOMIG [Suspect]
     Indication: MIGRAINE
     Route: 048
  17. PLAVIX [Concomitant]
  18. DIAZEPAM [Concomitant]
  19. NIACIN [Concomitant]
  20. OMEGA [Concomitant]
  21. LANSOPRAZOLE ER [Concomitant]
  22. SIMVASTATIN [Concomitant]
  23. MULTI VIT D WITH MINERALS [Concomitant]
  24. KLOR-CON [Concomitant]
  25. HYDROCO PAP [Concomitant]
     Dosage: PRN 7.5/500
  26. NEXIUM [Suspect]
     Route: 048
  27. FLUTICASONE NASAL [Concomitant]
     Route: 045
  28. MEPERIDINE HCL [Concomitant]
     Dosage: PRN
  29. LUNESTA [Concomitant]
  30. PHENERGAN HCL [Concomitant]
     Dosage: 50 MG PRN
  31. MUCINEX DM [Concomitant]

REACTIONS (11)
  - GASTROOESOPHAGEAL REFLUX DISEASE [None]
  - IMMUNE SYSTEM DISORDER [None]
  - DIARRHOEA [None]
  - DRUG HYPERSENSITIVITY [None]
  - HALLUCINATION [None]
  - LARYNGITIS [None]
  - MIGRAINE [None]
  - DRUG DOSE OMISSION [None]
  - DRUG INEFFECTIVE [None]
  - MALAISE [None]
  - DYSPEPSIA [None]
